FAERS Safety Report 7092112-1 (Version None)
Quarter: 2010Q4

REPORT INFORMATION
  Report Type: 
  Country: None (occurrence: None)
  Receive Date: 20101109
  Receipt Date: 20101025
  Transmission Date: 20110411
  Serious: Yes (Other)
  Sender: FDA-Public Use
  Company Number: PHEH2004US11591

PATIENT
  Sex: Female
  Weight: 80.272 kg

DRUGS (52)
  1. AREDIA [Suspect]
     Indication: METASTASES TO BONE
     Dosage: 90MG Q4WK
     Dates: start: 20000421, end: 20020216
  2. ZOMETA [Suspect]
     Indication: METASTASES TO BONE
     Dosage: 4 MG, QMO
     Dates: start: 20010101
  3. ZOMETA [Suspect]
     Dosage: 4MG QW
     Dates: start: 20030129
  4. ZOMETA [Suspect]
     Dosage: 4MG Q3WK
     Dates: start: 20040225, end: 20050413
  5. ZOMETA [Suspect]
     Dosage: UNK, QW3
     Dates: start: 20040801
  6. OXYCONTIN [Concomitant]
     Indication: PAIN
     Dosage: 20MG BID
  7. LOTENSIN [Concomitant]
     Dosage: 20MG QD
  8. CELEXA [Concomitant]
     Indication: DEPRESSION
     Dosage: 20MG QD
  9. LASIX [Concomitant]
     Dosage: 40GM BID
  10. K-DUR [Concomitant]
     Dosage: 20 MEQ BID
  11. FEMARA [Concomitant]
     Dosage: 2.5 MG, QD
     Dates: start: 20000915, end: 20030129
  12. HERCEPTIN [Concomitant]
     Dosage: 4MG/KG LOADING DOSE
     Dates: start: 19990801
  13. HERCEPTIN [Concomitant]
     Dosage: 2MG/KG, EVERY WEEK
  14. TAXOL [Concomitant]
     Indication: METASTASIS
     Dates: start: 20000421, end: 20000818
  15. NAVELBINE [Concomitant]
     Dosage: 30MG/M2 UNKDAY1,8
     Dates: start: 20030129, end: 20040204
  16. XANAX [Concomitant]
     Indication: DEPRESSION
  17. TAXOTERE [Concomitant]
     Indication: BREAST CANCER
     Dosage: 75MG/M2 Q3WK
     Route: 042
     Dates: start: 19990801, end: 20000818
  18. PREDNISONE [Concomitant]
     Dosage: 5MG POST TAXOL INFUSION
  19. BENADRYL [Concomitant]
     Dates: start: 20000623
  20. CIMETIDINE [Concomitant]
     Dates: start: 20000623
  21. TYLENOL W/ CODEINE [Concomitant]
     Indication: PAIN
     Dosage: UNK, PRN
  22. VACCINE BREAST CANCER PROTOCOL [Concomitant]
  23. CELEBREX [Concomitant]
  24. ZYBAN [Concomitant]
  25. LISINOPRIL [Concomitant]
  26. ADVAIR DISKUS 100/50 [Concomitant]
  27. RADIATION THERAPY [Concomitant]
  28. KEFLEX [Concomitant]
  29. HERCEPTIN [Concomitant]
  30. ASCORBIC ACID [Concomitant]
  31. VITAMIN B [Concomitant]
  32. MINERALS NOS [Concomitant]
  33. HYDROCODONE [Concomitant]
  34. LEVAQUIN [Concomitant]
  35. ALBUTEROL [Concomitant]
  36. CEPHALEXIN [Concomitant]
  37. TRAZODONE [Concomitant]
  38. WARFARIN [Concomitant]
  39. METRONIDAZOLE [Concomitant]
  40. CHLORHEXIDINE GLUCONATE [Concomitant]
  41. ACETAMINOPHEN AND HYDROCODONE BITARTRATE [Concomitant]
  42. CYMBALTA [Concomitant]
  43. BUPROPION [Concomitant]
  44. DEXAMETHASONE [Concomitant]
  45. PROMETHAZINE [Concomitant]
  46. KYTRIL [Concomitant]
  47. HERCEPTIN [Concomitant]
  48. COUMADIN [Concomitant]
     Dosage: UNK
     Route: 048
     Dates: start: 20051019
  49. PREVACID [Concomitant]
     Dosage: 30 MG, QHS
     Route: 048
  50. FASLODEX [Concomitant]
     Dosage: 250 MG, UNK
     Route: 030
  51. COMPAZINE [Concomitant]
  52. DYAZIDE [Concomitant]
     Indication: OEDEMA
     Dosage: UNK

REACTIONS (65)
  - ANAEMIA [None]
  - ANXIETY [None]
  - AORTIC ARTERIOSCLEROSIS [None]
  - ATELECTASIS [None]
  - BLOOD CREATININE INCREASED [None]
  - BONE ABSCESS [None]
  - BONE DEBRIDEMENT [None]
  - BONE DISORDER [None]
  - BONE LESION [None]
  - BONE SWELLING [None]
  - BURSITIS [None]
  - CAPILLARY LEAK SYNDROME [None]
  - CARDIOMEGALY [None]
  - DEPRESSED MOOD [None]
  - DIARRHOEA [None]
  - DYSPHAGIA [None]
  - EJECTION FRACTION ABNORMAL [None]
  - ERYTHEMA [None]
  - EXOSTOSIS [None]
  - FALL [None]
  - FAMILY STRESS [None]
  - GASTROOESOPHAGEAL REFLUX DISEASE [None]
  - GINGIVAL DISORDER [None]
  - GINGIVAL RECESSION [None]
  - HAEMORRHAGE [None]
  - HAEMORRHOIDS [None]
  - HEART RATE DECREASED [None]
  - HEPATIC CYST [None]
  - HYPERBARIC OXYGEN THERAPY [None]
  - HYPERPLASIA [None]
  - IMPAIRED HEALING [None]
  - INFECTION [None]
  - INFLAMMATION [None]
  - INTRAMEDULLARY ROD INSERTION [None]
  - KYPHOSIS [None]
  - LEFT ATRIAL DILATATION [None]
  - MALIGNANT NEOPLASM PROGRESSION [None]
  - METASTASES TO BONE [None]
  - METASTASES TO BONE MARROW [None]
  - METASTASES TO LUNG [None]
  - METASTASES TO SPINE [None]
  - MITRAL VALVE INCOMPETENCE [None]
  - NAUSEA [None]
  - OBESITY [None]
  - ORAL DISORDER [None]
  - OSTEITIS DEFORMANS [None]
  - OSTEOARTHRITIS [None]
  - OSTEOMYELITIS [None]
  - OSTEONECROSIS OF JAW [None]
  - PAIN [None]
  - PAIN IN JAW [None]
  - PATHOLOGICAL FRACTURE [None]
  - PLEURAL EFFUSION [None]
  - POLYPECTOMY [None]
  - PRIMARY SEQUESTRUM [None]
  - RED BLOOD CELL SEDIMENTATION RATE INCREASED [None]
  - ROTATOR CUFF SYNDROME [None]
  - SINUS TACHYCARDIA [None]
  - SINUSITIS [None]
  - SWELLING [None]
  - TOOTH DISORDER [None]
  - TOOTH EXTRACTION [None]
  - TRISMUS [None]
  - VENTRICULAR HYPOKINESIA [None]
  - VOMITING [None]
